FAERS Safety Report 21578265 (Version 1)
Quarter: 2022Q4

REPORT INFORMATION
  Report Type: Spontaneous
  Country: CN (occurrence: CN)
  Receive Date: 20221110
  Receipt Date: 20221110
  Transmission Date: 20230112
  Serious: Yes (Life-Threatening)
  Sender: FDA-Public Use
  Company Number: CN-002147023-NVSC2022CN253553

PATIENT
  Age: 76 Year
  Sex: Female
  Weight: 52 kg

DRUGS (1)
  1. ACLASTA [Suspect]
     Active Substance: ZOLEDRONIC ACID
     Indication: Osteoporosis
     Dosage: 5 MG, Q12MO
     Route: 041
     Dates: start: 20221031, end: 20221101

REACTIONS (6)
  - Depressed mood [Recovering/Resolving]
  - Malnutrition [Recovering/Resolving]
  - Head discomfort [Recovering/Resolving]
  - Pain [Recovering/Resolving]
  - Limb discomfort [Recovering/Resolving]
  - Back pain [Recovering/Resolving]

NARRATIVE: CASE EVENT DATE: 20221101
